FAERS Safety Report 7942156-X (Version None)
Quarter: 2011Q4

REPORT INFORMATION
  Report Type: 
  Country: None (occurrence: None)
  Receive Date: 20111122
  Receipt Date: 20111110
  Transmission Date: 20120403
  Serious: Yes (Hospitalization, Other)
  Sender: FDA-Public Use
  Company Number: 2011MA016244

PATIENT
  Age: 77 Year
  Sex: Female
  Weight: 75 kg

DRUGS (7)
  1. CARBAMAZEPINE [Suspect]
     Indication: CONDITION AGGRAVATED
     Dosage: 200 MG;Q12HR
  2. CARBAMAZEPINE [Suspect]
     Indication: DEPRESSION
     Dosage: 200 MG;Q12HR
  3. GLYBURIDE [Concomitant]
  4. ESCITALOPRAM [Suspect]
     Indication: DEPRESSION
     Dosage: 10 MG;QD
  5. OMEPRAZOLE [Concomitant]
  6. AMIODARONE HCL [Concomitant]
  7. TRAZODONE HCL [Suspect]
     Indication: CONDITION AGGRAVATED
     Dosage: 100 MG;QD

REACTIONS (14)
  - TOXICITY TO VARIOUS AGENTS [None]
  - GENERAL PHYSICAL HEALTH DETERIORATION [None]
  - INSOMNIA [None]
  - IRRITABILITY [None]
  - ESSENTIAL TREMOR [None]
  - DRUG INTERACTION [None]
  - PSYCHOTIC DISORDER [None]
  - GAIT DISTURBANCE [None]
  - DECREASED APPETITE [None]
  - DELUSION [None]
  - ATAXIA [None]
  - TREMOR [None]
  - HYPOTONIA [None]
  - DEPRESSION [None]
